FAERS Safety Report 9346963 (Version 1)
Quarter: 2013Q2

REPORT INFORMATION
  Report Type: Spontaneous
  Country: AU (occurrence: AU)
  Receive Date: 20130613
  Receipt Date: 20130613
  Transmission Date: 20140414
  Serious: Yes (Death)
  Sender: FDA-Public Use
  Company Number: AU-ROXANE LABORATORIES, INC.-2013-RO-00941RO

PATIENT
  Age: 37 Year
  Sex: Female

DRUGS (3)
  1. DIAZEPAM [Suspect]
  2. PAROXETINE [Suspect]
  3. ETHANOL [Suspect]

REACTIONS (6)
  - Alcohol poisoning [Fatal]
  - Peripheral embolism [Fatal]
  - Renal failure acute [Fatal]
  - Ventricular hypertrophy [Fatal]
  - Pericarditis [Fatal]
  - Mitral valve calcification [Fatal]
